FAERS Safety Report 5089226-4 (Version None)
Quarter: 2006Q3

REPORT INFORMATION
  Report Type: 
  Country: None (occurrence: None)
  Receive Date: 20060825
  Receipt Date: 20060801
  Transmission Date: 20061208
  Serious: Yes (Other)
  Sender: FDA-Public Use
  Company Number: US-ABBOTT-06P-163-0339264-00

PATIENT
  Sex: Male

DRUGS (2)
  1. KALETRA [Suspect]
     Indication: HIV INFECTION
     Route: 048
     Dates: start: 20060602
  2. TRUVADA [Concomitant]
     Indication: HIV INFECTION
     Route: 048

REACTIONS (3)
  - COLON CANCER [None]
  - DIARRHOEA [None]
  - PERIRECTAL ABSCESS [None]
